FAERS Safety Report 8978093 (Version 1)
Quarter: 2012Q4

REPORT INFORMATION
  Report Type: 
  Country: CH (occurrence: CH)
  Receive Date: 20121220
  Receipt Date: 20121220
  Transmission Date: 20130627
  Serious: Yes (Other)
  Sender: FDA-Public Use
  Company Number: CH-AMGEN-CHESP2012080757

PATIENT
  Age: 66 Year
  Sex: Female
  Weight: 81 kg

DRUGS (4)
  1. PROLIA [Suspect]
     Indication: OSTEOPOROSIS
     Dosage: 60 mg, q6mo
     Route: 058
     Dates: start: 20111221, end: 20120620
  2. CALCIUM-SANDOZ D3 FF [Concomitant]
     Indication: OSTEOPOROSIS
     Dosage: 1 DF, qd
     Route: 048
     Dates: start: 2006
  3. IRFEN [Concomitant]
     Indication: PAIN
     Dosage: 1600 mg, bid
     Route: 048
     Dates: start: 201112
  4. CONDROSULF [Concomitant]
     Indication: POLYARTHRITIS
     Dosage: 800 mg, qd
     Route: 048
     Dates: start: 2006

REACTIONS (3)
  - Femur fracture [Not Recovered/Not Resolved]
  - Callus formation delayed [Not Recovered/Not Resolved]
  - Pain in extremity [Not Recovered/Not Resolved]
